FAERS Safety Report 17939029 (Version 3)
Quarter: 2021Q2

REPORT INFORMATION
  Report Type: Other
  Country: CN (occurrence: CN)
  Receive Date: 20200625
  Receipt Date: 20210610
  Transmission Date: 20210717
  Serious: Yes (Other)
  Sender: FDA-Public Use
  Company Number: CN-ROCHE-2351223

PATIENT
  Age: 55 Year
  Sex: Male
  Weight: 66 kg

DRUGS (1)
  1. AVASTIN [Suspect]
     Active Substance: BEVACIZUMAB
     Indication: NON-SMALL CELL LUNG CANCER
     Route: 041
     Dates: start: 20170413

REACTIONS (7)
  - White blood cell count decreased [Unknown]
  - Immunodeficiency [Unknown]
  - Myelosuppression [Not Recovered/Not Resolved]
  - Renal impairment [Unknown]
  - Asthenia [Unknown]
  - Hypotension [Unknown]
  - Vascular rupture [Unknown]

NARRATIVE: CASE EVENT DATE: 20200924
